FAERS Safety Report 14991951 (Version 1)
Quarter: 2018Q2

REPORT INFORMATION
  Report Type: Spontaneous
  Country: NL (occurrence: NL)
  Receive Date: 20180608
  Receipt Date: 20180608
  Transmission Date: 20180711
  Serious: No
  Sender: FDA-Public Use
  Company Number: NL-BIOVERATIV-2018BV000343

PATIENT
  Age: 6 Year
  Sex: Male
  Weight: 19 kg

DRUGS (1)
  1. ALPROLIX [Suspect]
     Active Substance: EFTRENONACOG ALFA
     Indication: PRODUCT USED FOR UNKNOWN INDICATION
     Dosage: SWITCHED 2-3 MONTHS AGO
     Route: 065
     Dates: start: 2018

REACTIONS (2)
  - Drug ineffective [Unknown]
  - Contusion [Unknown]
